FAERS Safety Report 9727392 (Version 1)
Quarter: 2013Q4

REPORT INFORMATION
  Report Type: Spontaneous
  Country: IT (occurrence: None)
  Receive Date: 20131129
  Receipt Date: 20131129
  Transmission Date: 20140711
  Serious: Yes (Hospitalization)
  Sender: FDA-Public Use
  Company Number: 2013AP009923

PATIENT
  Age: 83 Year
  Sex: Male

DRUGS (4)
  1. AMLODIPINE BESILATE [Suspect]
     Indication: PRODUCT USED FOR UNKNOWN INDICATION
     Dates: start: 20130101, end: 20131003
  2. RISPERIDONE (RISPERIDONE) [Suspect]
     Indication: PRODUCT USED FOR UNKNOWN INDICATION
     Dosage: 2 MG; UNKNOWN, PO; QD
     Route: 048
     Dates: start: 20130926, end: 20131003
  3. TARGIN [Suspect]
     Indication: PRODUCT USED FOR UNKNOWN INDICATION
     Dosage: TAB_PR
     Route: 048
     Dates: start: 20130926, end: 20131003
  4. CARDIOASPIRIN (ACETYLSALICYLIC ACID) [Concomitant]

REACTIONS (1)
  - Agitation [None]
